FAERS Safety Report 9616649 (Version 1)
Quarter: 2013Q4

REPORT INFORMATION
  Report Type: Spontaneous
  Country: KR (occurrence: KR)
  Receive Date: 20131011
  Receipt Date: 20131011
  Transmission Date: 20140711
  Serious: Yes (Hospitalization)
  Sender: FDA-Public Use
  Company Number: KR-ASTRAZENECA-2013SE73202

PATIENT
  Sex: 0

DRUGS (1)
  1. PROPOFOL [Suspect]
     Route: 042

REACTIONS (1)
  - Drug dependence [Unknown]
